FAERS Safety Report 9717189 (Version 1)
Quarter: 2013Q4

REPORT INFORMATION
  Report Type: Spontaneous
  Country: US (occurrence: US)
  Receive Date: 20131127
  Receipt Date: 20131127
  Transmission Date: 20140711
  Serious: Yes (Other)
  Sender: FDA-Public Use
  Company Number: US-MALLINCKRODT-T201304881

PATIENT
  Sex: Female
  Weight: 99.32 kg

DRUGS (8)
  1. FENTANYL TRANSDERMAL SYSTEM [Suspect]
     Indication: BACK PAIN
     Dosage: 50 UG/HR, 1 PATCH Q72H
     Route: 062
     Dates: start: 201211
  2. PERCOCET                           /00446701/ [Concomitant]
     Dosage: UNK
     Route: 048
  3. CYMBALTA [Concomitant]
     Dosage: UNK
     Route: 048
  4. CELEBREX [Concomitant]
     Dosage: UNK
     Route: 048
  5. CYCLOBENZAPRINE [Concomitant]
     Dosage: 10 MG, TID
     Route: 048
  6. LISINOPRIL AND HYDROCHLOROTHIAZIDE [Concomitant]
     Dosage: 20MG/12.5 MG, UNK
     Route: 048
  7. IRON [Concomitant]
     Indication: MINERAL SUPPLEMENTATION
     Dosage: UNK
     Route: 048
  8. MULTIVITAMIN                       /00097801/ [Concomitant]
     Dosage: UNK
     Route: 048

REACTIONS (4)
  - Loss of consciousness [Recovered/Resolved]
  - Road traffic accident [Recovered/Resolved]
  - Incorrect drug administration duration [Recovered/Resolved]
  - Weight decreased [Unknown]
